FAERS Safety Report 25411527 (Version 1)
Quarter: 2025Q2

REPORT INFORMATION
  Report Type: Spontaneous
  Country: FR (occurrence: FR)
  Receive Date: 20250609
  Receipt Date: 20250609
  Transmission Date: 20250717
  Serious: Yes (Disabling)
  Sender: ACCORD
  Company Number: None

PATIENT
  Age: 65 Year
  Sex: Male
  Weight: 64 kg

DRUGS (23)
  1. CARBOPLATIN [Suspect]
     Active Substance: CARBOPLATIN
     Indication: Lung adenocarcinoma
     Dates: start: 20250403, end: 20250403
  2. ALIMTA [Suspect]
     Active Substance: PEMETREXED DISODIUM
     Indication: Lung adenocarcinoma
     Dates: start: 20250306, end: 20250306
  3. PREDNISONE [Suspect]
     Active Substance: PREDNISONE
     Indication: Behcet^s syndrome
     Dosage: 15 MG/DAY
     Dates: start: 201806
  4. BUDESONIDE [Suspect]
     Active Substance: BUDESONIDE
     Indication: NSAID exacerbated respiratory disease
     Dosage: 1 INHALATION/DAY
     Dates: start: 201711
  5. METHYLPREDNISOLONE [Suspect]
     Active Substance: METHYLPREDNISOLONE
     Indication: Behcet^s syndrome
     Dosage: 120 MG/DAY
     Dates: start: 20250128, end: 20250201
  6. RUPATADINE [Concomitant]
     Active Substance: RUPATADINE
     Dosage: 1 TABLET IN THE MORNING
  7. SERETIDE [Concomitant]
     Active Substance: FLUTICASONE PROPIONATE\SALMETEROL XINAFOATE
     Dosage: 2 PUFFS IN THE MORNING AND EVENING
  8. ACETAMINOPHEN [Concomitant]
     Active Substance: ACETAMINOPHEN
  9. CICLOPIROX OLAMINE [Concomitant]
     Active Substance: CICLOPIROX OLAMINE
     Dosage: 1 BOTTLE PER MONTH AND 1 SHAMPOO PER WEEK WHEN TREATING THE FACE
  10. BACTRIM [Concomitant]
     Active Substance: SULFAMETHOXAZOLE\TRIMETHOPRIM
     Dosage: 800 MG EVERY MORNING
  11. COLCHICINE [Concomitant]
     Active Substance: COLCHICINE
     Indication: Behcet^s syndrome
  12. RAMIPRIL [Concomitant]
     Active Substance: RAMIPRIL
     Dosage: 1 TABLET IN THE MORNING
  13. METHOTREXATE [Concomitant]
     Active Substance: METHOTREXATE
     Dosage: 1 TIME PER WEEK ON TUESDAY
  14. FOLIC ACID [Concomitant]
     Active Substance: FOLIC ACID
     Dosage: 2 TABLETS IN THE MORNING EVERY THURSDAY
  15. BUDESONIDE [Concomitant]
     Active Substance: BUDESONIDE
  16. CARBOPLATIN [Suspect]
     Active Substance: CARBOPLATIN
     Indication: Lung adenocarcinoma
     Dates: start: 20250306
  17. CARBOPLATIN [Suspect]
     Active Substance: CARBOPLATIN
     Indication: Lung adenocarcinoma
     Dates: start: 20250512, end: 20250512
  18. ALIMTA [Suspect]
     Active Substance: PEMETREXED DISODIUM
     Indication: Lung adenocarcinoma
     Dates: start: 20250403, end: 20250403
  19. ALIMTA [Suspect]
     Active Substance: PEMETREXED DISODIUM
     Indication: Lung adenocarcinoma
     Dates: start: 20250512, end: 20250512
  20. BACTRIM [Concomitant]
     Active Substance: SULFAMETHOXAZOLE\TRIMETHOPRIM
     Dosage: 800 MG MORNING AND EVENING
     Dates: start: 20250327, end: 20250403
  21. BUDESONIDE [Suspect]
     Active Substance: BUDESONIDE
  22. PREDNISONE [Suspect]
     Active Substance: PREDNISONE
     Indication: Behcet^s syndrome
     Dosage: EVERY MORNING
     Dates: start: 202501
  23. PREDNISONE [Suspect]
     Active Substance: PREDNISONE
     Indication: Behcet^s syndrome
     Dosage: EVERY MORNING
     Dates: start: 20250512

REACTIONS (1)
  - Tendon rupture [Not Recovered/Not Resolved]

NARRATIVE: CASE EVENT DATE: 20250405
